FAERS Safety Report 5355083-1 (Version None)
Quarter: 2007Q2

REPORT INFORMATION
  Report Type: 
  Country: None (occurrence: None)
  Receive Date: 20070613
  Receipt Date: 20070531
  Transmission Date: 20071010
  Serious: Yes (Hospitalization)
  Sender: FDA-Public Use
  Company Number: PHBS2007DE09340

PATIENT
  Age: 18 Year
  Sex: Female

DRUGS (4)
  1. CYCLOSPORINE [Suspect]
     Indication: RENAL TRANSPLANT
     Route: 065
  2. MYCOPHENOLATE MOFETIL [Suspect]
     Indication: RENAL TRANSPLANT
     Route: 065
  3. PREDNISOLONE [Suspect]
     Indication: RENAL TRANSPLANT
     Route: 065
  4. TACROLIMUS [Suspect]
     Indication: RENAL TRANSPLANT
     Route: 065

REACTIONS (10)
  - COMPLICATIONS OF TRANSPLANTED KIDNEY [None]
  - OEDEMA [None]
  - PERITONEAL DIALYSIS [None]
  - PLATELET ADHESIVENESS INCREASED [None]
  - REMOVAL OF RENAL TRANSPLANT [None]
  - RENAL ATROPHY [None]
  - RENAL HAEMORRHAGE [None]
  - RENAL INFARCT [None]
  - RENAL TUBULAR NECROSIS [None]
  - VENOUS THROMBOSIS [None]
